FAERS Safety Report 18353326 (Version 1)
Quarter: 2020Q4

REPORT INFORMATION
  Report Type: Spontaneous
  Country: IT (occurrence: IT)
  Receive Date: 20201007
  Receipt Date: 20201007
  Transmission Date: 20210114
  Serious: Yes (Hospitalization)
  Sender: FDA-Public Use
  Company Number: IT-TEVA-2020-IT-1835387

PATIENT
  Age: 42 Year
  Sex: Male

DRUGS (2)
  1. FLURBIPROFEN SODIUM. [Suspect]
     Active Substance: FLURBIPROFEN SODIUM
     Indication: OROPHARYNGEAL PAIN
     Route: 065
     Dates: start: 20200812
  2. AULIN [Concomitant]
     Active Substance: NIMESULIDE
     Indication: PAIN
     Dates: start: 20200812

REACTIONS (1)
  - Lip oedema [Not Recovered/Not Resolved]

NARRATIVE: CASE EVENT DATE: 20200812
